FAERS Safety Report 18014990 (Version 2)
Quarter: 2020Q3

REPORT INFORMATION
  Report Type: Spontaneous
  Country: JP (occurrence: JP)
  Receive Date: 20200713
  Receipt Date: 20200813
  Transmission Date: 20201103
  Serious: Yes (Hospitalization, Other)
  Sender: FDA-Public Use
  Company Number: JP-FERRINGPH-2020FE04418

PATIENT
  Age: 83 Year
  Sex: Female

DRUGS (10)
  1. CEFON [CEFOPERAZONE SODIUM;SULBACTAM SODIUM] [Concomitant]
  2. MINIRINMELT [Suspect]
     Active Substance: DESMOPRESSIN ACETATE
     Dosage: 180 UG
     Route: 065
     Dates: start: 20200616
  3. LANSOPRAZOLE. [Concomitant]
     Active Substance: LANSOPRAZOLE
  4. SENNOSIDES. [Concomitant]
     Active Substance: SENNOSIDES
  5. BETAHISTINE MESILATE [Concomitant]
     Active Substance: BETAHISTINE MESILATE
  6. TRICHLORMETHIAZIDE [Concomitant]
     Active Substance: TRICHLORMETHIAZIDE
  7. MINIRINMELT [Suspect]
     Active Substance: DESMOPRESSIN ACETATE
     Indication: DIABETES INSIPIDUS
     Dosage: 120 UG
     Route: 065
     Dates: start: 2020
  8. CLOTIAZEPAM [Concomitant]
     Active Substance: CLOTIAZEPAM
  9. REBAMIPIDE [Concomitant]
     Active Substance: REBAMIPIDE
  10. SPIRONOLACTONE. [Concomitant]
     Active Substance: SPIRONOLACTONE

REACTIONS (1)
  - Hyponatraemia [Recovered/Resolved]

NARRATIVE: CASE EVENT DATE: 20200622
